FAERS Safety Report 7495127-4 (Version None)
Quarter: 2011Q2

REPORT INFORMATION
  Report Type: 
  Country: None (occurrence: None)
  Receive Date: 20110520
  Receipt Date: 20110518
  Transmission Date: 20111010
  Serious: Yes (Life-Threatening, Hospitalization)
  Sender: FDA-Public Use
  Company Number: US-B.I. PHARMACEUTICALS,INC./RIDGEFIELD-2011-BP-11175BP

PATIENT
  Sex: Female

DRUGS (19)
  1. TRAMADOL HCL [Concomitant]
  2. MOBIC [Suspect]
     Dosage: 15 MG
     Dates: start: 20101213, end: 20110404
  3. METOPROLOL SUCCINATE [Concomitant]
     Dosage: 100 MG
  4. AMIODARONE HCL [Concomitant]
     Dosage: 200 MG
  5. PRENATAL VITS [Concomitant]
  6. SINGULAIR [Concomitant]
     Dosage: 10 MG
  7. NASACORT [Concomitant]
  8. FOSAMAX [Suspect]
     Dates: end: 20110404
  9. IMDUR [Concomitant]
     Dosage: 30 MG
  10. SIMVASTATIN [Concomitant]
  11. LOSARTAN [Concomitant]
     Dosage: 50 MG
  12. NITROSTAT [Concomitant]
  13. VIT D3 [Concomitant]
  14. CITRACAL [Concomitant]
  15. PRADAXA [Suspect]
     Indication: ATRIAL FIBRILLATION
     Dosage: 300 MG
     Route: 048
     Dates: start: 20110128, end: 20110404
  16. RESTASIS [Concomitant]
  17. THERA-TEARS [Concomitant]
  18. COLCRYS [Concomitant]
     Dosage: 6 MG
  19. ASPIRIN [Concomitant]
     Dosage: 81 MG
     Dates: end: 20110315

REACTIONS (8)
  - FATIGUE [None]
  - FAECES DISCOLOURED [None]
  - GASTROINTESTINAL HAEMORRHAGE [None]
  - NAUSEA [None]
  - DECREASED APPETITE [None]
  - GASTRITIS [None]
  - ABDOMINAL PAIN LOWER [None]
  - HAEMOGLOBIN DECREASED [None]
